FAERS Safety Report 5250160-8 (Version None)
Quarter: 2007Q1

REPORT INFORMATION
  Report Type: 
  Country: None (occurrence: None)
  Receive Date: 20070228
  Receipt Date: 20060216
  Transmission Date: 20070707
  Serious: No
  Sender: FDA-Public Use
  Company Number: US-GLAXOSMITHKLINE-A0593980A

PATIENT
  Age: 41 Year
  Sex: Female

DRUGS (3)
  1. LAMICTAL [Suspect]
     Indication: BIPOLAR II DISORDER
     Dosage: 100MG PER DAY
     Route: 048
     Dates: start: 20050801
  2. PROZAC [Concomitant]
  3. KLONOPIN [Concomitant]

REACTIONS (3)
  - GROWTH RETARDATION [None]
  - HYPOTRICHOSIS [None]
  - TRICHORRHEXIS [None]
